FAERS Safety Report 23146390 (Version 1)
Quarter: 2023Q4

REPORT INFORMATION
  Report Type: Spontaneous
  Country: US (occurrence: US)
  Receive Date: 20231104
  Receipt Date: 20231104
  Transmission Date: 20240109
  Serious: No
  Sender: FDA-Public Use
  Company Number: US-GLENMARK PHARMACEUTICALS-2023GMK084148

PATIENT

DRUGS (1)
  1. RYALTRIS [Suspect]
     Active Substance: MOMETASONE FUROATE MONOHYDRATE\OLOPATADINE HYDROCHLORIDE
     Indication: Postoperative care
     Dosage: 2 DOSAGE FORM, BID
     Route: 045

REACTIONS (3)
  - Product use in unapproved indication [Unknown]
  - Device defective [Unknown]
  - Product delivery mechanism issue [Unknown]
